FAERS Safety Report 16635554 (Version 2)
Quarter: 2019Q3

REPORT INFORMATION
  Report Type: Report from Study
  Country: JP (occurrence: JP)
  Receive Date: 20190726
  Receipt Date: 20190822
  Transmission Date: 20191004
  Serious: Yes (Hospitalization)
  Sender: FDA-Public Use
  Company Number: JP-CELGENEUS-JPN-20190708341

PATIENT
  Age: 77 Year
  Sex: Male
  Weight: 43.2 kg

DRUGS (10)
  1. ABRAXANE [Suspect]
     Active Substance: PACLITAXEL
     Indication: METASTATIC GASTRIC CANCER
     Dosage: 145 MILLIGRAM
     Route: 041
     Dates: start: 20190614, end: 20190628
  2. CYRAMZA [Suspect]
     Active Substance: RAMUCIRUMAB
     Dosage: 345 MILLIGRAM
     Route: 041
     Dates: start: 20190614, end: 20190628
  3. LANSOPRAZOLE. [Concomitant]
     Active Substance: LANSOPRAZOLE
     Indication: PROPHYLAXIS
     Dosage: 15 MILLIGRAM
     Route: 048
     Dates: start: 20190513, end: 20190716
  4. SODIUM FERROUS CITRATE [Concomitant]
     Active Substance: SODIUM FERROUS CITRATE
     Indication: ANAEMIA
     Dosage: 200 MILLIGRAM
     Route: 048
     Dates: start: 20190513
  5. CYRAMZA [Suspect]
     Active Substance: RAMUCIRUMAB
     Indication: METASTATIC GASTRIC CANCER
     Dosage: 345 MILLIGRAM
     Route: 041
     Dates: start: 20190416
  6. ACETAMINOPHEN. [Concomitant]
     Active Substance: ACETAMINOPHEN
     Indication: PAIN
     Dosage: 1200 MILLIGRAM
     Route: 048
     Dates: start: 20190527, end: 20190724
  7. ENEVO [Concomitant]
     Indication: MALNUTRITION
     Dosage: 250 MILLILITER
     Route: 048
     Dates: start: 20190603
  8. COLIBACILLUS VACCINE [Concomitant]
     Indication: HAEMORRHOIDS
     Route: 061
     Dates: start: 20190223
  9. METHYLPREDNISOLONE. [Concomitant]
     Active Substance: METHYLPREDNISOLONE
     Indication: PRODUCT USED FOR UNKNOWN INDICATION
     Route: 065
     Dates: start: 20190716, end: 20190718
  10. BROTIZOLAM [Concomitant]
     Active Substance: BROTIZOLAM
     Indication: INSOMNIA
     Route: 048
     Dates: start: 20190603

REACTIONS (1)
  - Lung disorder [Recovering/Resolving]

NARRATIVE: CASE EVENT DATE: 20190705
